FAERS Safety Report 7620130-0 (Version None)
Quarter: 2011Q3

REPORT INFORMATION
  Report Type: 
  Country: None (occurrence: None)
  Receive Date: 20110719
  Receipt Date: 20110708
  Transmission Date: 20111222
  Serious: Yes (Hospitalization)
  Sender: FDA-Public Use
  Company Number: KR-JNJFOC-20080706321

PATIENT
  Age: 36 Year
  Sex: Male
  Weight: 61.8 kg

DRUGS (6)
  1. STILLEN [Concomitant]
     Indication: GASTROINTESTINAL DISORDER THERAPY
     Route: 048
     Dates: start: 20070531
  2. INFLIXIMAB [Suspect]
     Indication: ANKYLOSING SPONDYLITIS
     Route: 042
     Dates: start: 20070915
  3. INFLIXIMAB [Suspect]
     Dosage: 4TH DOSE IN A SERIES
     Route: 042
     Dates: start: 20071222, end: 20071222
  4. ITOPRIDE HCL [Concomitant]
     Indication: GASTROINTESTINAL DISORDER THERAPY
     Route: 048
     Dates: start: 20070531
  5. CORTICAP [Concomitant]
     Indication: PREMEDICATION
     Route: 042
     Dates: start: 20071222, end: 20071222
  6. ACECLOFENAC [Concomitant]
     Indication: ANKYLOSING SPONDYLITIS
     Route: 048
     Dates: start: 20070531

REACTIONS (1)
  - DISSEMINATED TUBERCULOSIS [None]
